FAERS Safety Report 10443093 (Version 1)
Quarter: 2014Q3

REPORT INFORMATION
  Report Type: Spontaneous
  Country: IT (occurrence: IT)
  Receive Date: 20140909
  Receipt Date: 20140909
  Transmission Date: 20150326
  Serious: Yes (Other)
  Sender: FDA-Public Use
  Company Number: PHHY2014IT110420

PATIENT
  Age: 65 Year
  Sex: Female

DRUGS (3)
  1. ALENDRONIC ACID [Suspect]
     Active Substance: ALENDRONIC ACID
     Dates: start: 2004
  2. PARATHYROID HORMONE [Concomitant]
     Active Substance: PARATHYROID HORMONE
     Dosage: 100 MCG/DAY FOR 24 MONTHS
  3. VITAMIN D [Concomitant]
     Active Substance: CHOLECALCIFEROL

REACTIONS (5)
  - Pain in extremity [Recovered/Resolved]
  - Pseudarthrosis [Recovered/Resolved]
  - Lumbar spinal stenosis [Recovered/Resolved]
  - Femur fracture [Recovered/Resolved]
  - Atypical femur fracture [Recovered/Resolved]

NARRATIVE: CASE EVENT DATE: 2010
